FAERS Safety Report 11595056 (Version 6)
Quarter: 2016Q2

REPORT INFORMATION
  Report Type: Report from Study
  Country: FR (occurrence: FR)
  Receive Date: 20151005
  Receipt Date: 20160404
  Transmission Date: 20160815
  Serious: Yes (Other)
  Sender: FDA-Public Use
  Company Number: FR-BRISTOL-MYERS SQUIBB COMPANY-BMS-2015-051684

PATIENT
  Age: 78 Year
  Sex: Male
  Weight: 134 kg

DRUGS (5)
  1. NIVOLUMAB [Suspect]
     Active Substance: NIVOLUMAB
     Dosage: 405 MG, UNK
     Route: 065
     Dates: start: 20151118
  2. NIVOLUMAB [Suspect]
     Active Substance: NIVOLUMAB
     Indication: MALIGNANT MELANOMA
     Dosage: 369 MG, UNK
     Route: 065
  3. NIVOLUMAB [Suspect]
     Active Substance: NIVOLUMAB
     Dosage: 378 UNK, 3MG/KG
     Route: 065
     Dates: start: 20160210
  4. NIVOLUMAB [Suspect]
     Active Substance: NIVOLUMAB
     Dosage: 402 MG, UNK
     Route: 065
     Dates: start: 20151230
  5. NIVOLUMAB [Suspect]
     Active Substance: NIVOLUMAB
     Dosage: 405 UNK, UNK
     Route: 065
     Dates: start: 20160309

REACTIONS (8)
  - Platelet disorder [Unknown]
  - Optic neuritis [Recovered/Resolved]
  - White blood cell disorder [Unknown]
  - Neutrophil count abnormal [Unknown]
  - Thrombocytosis [Unknown]
  - White blood cell disorder [Unknown]
  - Lymphocyte count abnormal [Unknown]
  - Platelet count decreased [Unknown]

NARRATIVE: CASE EVENT DATE: 20150715
